FAERS Safety Report 20005336 (Version 2)
Quarter: 2021Q4

REPORT INFORMATION
  Report Type: Report from Study
  Country: IT (occurrence: IT)
  Receive Date: 20211028
  Receipt Date: 20211103
  Transmission Date: 20220303
  Serious: Yes (Other)
  Sender: FDA-Public Use
  Company Number: IT-SUN PHARMACEUTICAL INDUSTRIES LTD-2021RR-314743

PATIENT

DRUGS (3)
  1. TETRABENAZINE [Suspect]
     Active Substance: TETRABENAZINE
     Indication: Cerebral palsy
     Dosage: 6.25 MG, ONCE DAILY (1/4 ORAL TABLET OF 25 MG) AT LEAST DURING THE FIRST WEEK
     Route: 048
  2. TETRABENAZINE [Suspect]
     Active Substance: TETRABENAZINE
     Dosage: TITRATED GRADUALLY INCREASING IT TO 6.25MG WEEKLY OR BIWEEKLY
     Route: 048
  3. TETRABENAZINE [Suspect]
     Active Substance: TETRABENAZINE
     Dosage: 50 MILLIGRAM, DAILY (2 MG/KG, TWICE OR THREE TIMES DAILY)
     Route: 048

REACTIONS (2)
  - Dystonia [Unknown]
  - Depression [Unknown]
